FAERS Safety Report 6580455-7 (Version None)
Quarter: 2010Q1

REPORT INFORMATION
  Report Type: 
  Country: None (occurrence: None)
  Receive Date: 20100203
  Receipt Date: 20100118
  Transmission Date: 20100710
  Serious: Yes (Death)
  Sender: FDA-Public Use
  Company Number: B0627833A

PATIENT
  Age: 53 Year
  Sex: Female

DRUGS (3)
  1. PAROXETINE HCL [Suspect]
     Dosage: ORAL
     Route: 048
  2. IMIPRAMINE [Suspect]
     Dosage: ORAL
     Route: 048
  3. FENTANYL [Suspect]
     Dosage: TRANSDERMAL
     Route: 062

REACTIONS (1)
  - DRUG ABUSE [None]
